FAERS Safety Report 21823031 (Version 2)
Quarter: 2023Q1

REPORT INFORMATION
  Report Type: Spontaneous
  Country: DE (occurrence: DE)
  Receive Date: 20230105
  Receipt Date: 20230217
  Transmission Date: 20230417
  Serious: Yes (Life-Threatening, Hospitalization, Other)
  Sender: FDA-Public Use
  Company Number: None

PATIENT
  Age: 83 Year
  Sex: Female

DRUGS (1)
  1. METHOTREXATE SODIUM [Suspect]
     Active Substance: METHOTREXATE SODIUM
     Indication: Psoriasis
     Dosage: WRONG DOSAGE (DAILY INSTEAD OF WEEKLY)
     Route: 048
     Dates: start: 20220926, end: 20221006

REACTIONS (10)
  - Pancytopenia [Not Recovered/Not Resolved]
  - Overdose [Not Recovered/Not Resolved]
  - Inappropriate schedule of product administration [Unknown]
  - Infection [Unknown]
  - Stomatitis [Unknown]
  - Pain [Unknown]
  - Weight decreased [Unknown]
  - General physical health deterioration [Unknown]
  - Alopecia [Unknown]
  - Inflammation [Not Recovered/Not Resolved]

NARRATIVE: CASE EVENT DATE: 20220101
